FAERS Safety Report 7056722-X (Version None)
Quarter: 2010Q4

REPORT INFORMATION
  Report Type: 
  Country: None (occurrence: None)
  Receive Date: 20101022
  Receipt Date: 20101018
  Transmission Date: 20110411
  Serious: Yes (Hospitalization)
  Sender: FDA-Public Use
  Company Number: US-BIOGENIDEC-2010BI029256

PATIENT
  Age: 58 Year
  Sex: Female

DRUGS (1)
  1. TYSABRI [Suspect]
     Indication: MULTIPLE SCLEROSIS
     Route: 042
     Dates: start: 20100813

REACTIONS (10)
  - BALANCE DISORDER [None]
  - CONVULSION [None]
  - DIAPHRAGM MUSCLE WEAKNESS [None]
  - DIPLOPIA [None]
  - FALL [None]
  - HYPOAESTHESIA [None]
  - LEARNING DISABILITY [None]
  - MUSCULAR WEAKNESS [None]
  - MUSCULOSKELETAL DISORDER [None]
  - PYREXIA [None]
